FAERS Safety Report 9547735 (Version 1)
Quarter: 2013Q3

REPORT INFORMATION
  Report Type: Spontaneous
  Country: US (occurrence: None)
  Receive Date: 20130701
  Receipt Date: 20130701
  Transmission Date: 20140515
  Serious: No
  Sender: FDA-Public Use
  Company Number: 241401

PATIENT
  Sex: 0

DRUGS (1)
  1. PROPOFOL [Suspect]
     Indication: ANAESTHESIA
     Dosage: 100-150 MG INDUCTION DOSE, NOT REPORTED, INTRAVENOUS
     Route: 042
     Dates: start: 20090409, end: 20090409

REACTIONS (1)
  - Blood pressure decreased [None]
